FAERS Safety Report 14162481 (Version 2)
Quarter: 2017Q4

REPORT INFORMATION
  Report Type: Spontaneous
  Country: US (occurrence: US)
  Receive Date: 20171106
  Receipt Date: 20171211
  Transmission Date: 20180321
  Serious: No
  Sender: FDA-Public Use
  Company Number: US-MATRIXX INITIATIVES, INC.-2033304

PATIENT
  Age: 75 Year
  Sex: Female
  Weight: 72.27 kg

DRUGS (1)
  1. ZICAM COLD REMEDY RAPIDMELTS [Suspect]
     Active Substance: HOMEOPATHICS\ZINC ACETATE ANHYDROUS\ZINC GLUCONATE
     Indication: NASOPHARYNGITIS
     Route: 048

REACTIONS (3)
  - Hypoaesthesia oral [Recovered/Resolved]
  - Glossodynia [Recovered/Resolved]
  - Ageusia [Recovered/Resolved]
